FAERS Safety Report 9086567 (Version 1)
Quarter: 2013Q1

REPORT INFORMATION
  Report Type: Report from Study
  Country: US (occurrence: US)
  Receive Date: 20130131
  Receipt Date: 20130131
  Transmission Date: 20140127
  Serious: No
  Sender: FDA-Public Use
  Company Number: US-ABBOTT-12P-163-0996421-00

PATIENT
  Age: 37 Year
  Sex: Female

DRUGS (6)
  1. HUMIRA [Suspect]
     Indication: ANKYLOSING SPONDYLITIS
     Route: 058
     Dates: start: 20120214
  2. SULFAZINE [Concomitant]
     Indication: SWELLING
  3. INDOCIN [Concomitant]
     Indication: PAIN
  4. LYRICA [Concomitant]
     Indication: PAIN
     Dosage: 50MG DAILY
  5. UNKNOWN SLEEPING PILL [Concomitant]
     Indication: INSOMNIA
  6. UNKNOWN ANXIETY PILL [Concomitant]
     Indication: ANXIETY

REACTIONS (5)
  - Malaise [Not Recovered/Not Resolved]
  - Influenza [Not Recovered/Not Resolved]
  - Headache [Not Recovered/Not Resolved]
  - Nausea [Not Recovered/Not Resolved]
  - Pyrexia [Not Recovered/Not Resolved]
